FAERS Safety Report 23859594 (Version 1)
Quarter: 2024Q2

REPORT INFORMATION
  Report Type: Spontaneous
  Country: US (occurrence: US)
  Receive Date: 20240515
  Receipt Date: 20240515
  Transmission Date: 20240716
  Serious: No
  Sender: FDA-Public Use
  Company Number: US-MYLANLABS-2024M1039850

PATIENT

DRUGS (1)
  1. LISDEXAMFETAMINE DIMESYLATE [Suspect]
     Active Substance: LISDEXAMFETAMINE DIMESYLATE
     Indication: Product used for unknown indication
     Dosage: 20 MILLIGRAM, BID (TWICE A DAY)
     Route: 065

REACTIONS (8)
  - Loss of personal independence in daily activities [Unknown]
  - Anxiety [Unknown]
  - Emotional disorder [Unknown]
  - Therapeutic response changed [Unknown]
  - Headache [Unknown]
  - Product substitution issue [Unknown]
  - Irritability [Unknown]
  - Mood swings [Unknown]
